FAERS Safety Report 9464098 (Version 2)
Quarter: 2013Q3

REPORT INFORMATION
  Report Type: Spontaneous
  Country: US (occurrence: US)
  Receive Date: 20130819
  Receipt Date: 20130819
  Transmission Date: 20140515
  Serious: Yes (Other)
  Sender: FDA-Public Use
  Company Number: US-INCYTE CORPORATION-2013IN000551

PATIENT
  Age: 60 Year
  Sex: Female
  Weight: 72.11 kg

DRUGS (10)
  1. JAKAFI [Suspect]
     Indication: MYELOFIBROSIS
     Dosage: 20 MG, BID
     Route: 048
     Dates: start: 20121215, end: 20130627
  2. JAKAFI [Suspect]
     Dosage: 10 MG, BID
  3. JAKAFI [Suspect]
     Dosage: 10 MG, BID
  4. WELLBUTRIN [Concomitant]
  5. DULERA [Concomitant]
  6. ZYRTEC [Concomitant]
  7. MIRALAX [Concomitant]
  8. PROTONIX [Concomitant]
  9. ALLEGRA [Concomitant]
  10. AMBIEN [Concomitant]

REACTIONS (6)
  - Constipation [Unknown]
  - Abdominal distension [Unknown]
  - Fatigue [Unknown]
  - Discomfort [Unknown]
  - Weight increased [Unknown]
  - Haemoglobin decreased [Unknown]
